FAERS Safety Report 24787364 (Version 1)
Quarter: 2024Q4

REPORT INFORMATION
  Report Type: Spontaneous
  Country: US (occurrence: US)
  Receive Date: 20241230
  Receipt Date: 20241230
  Transmission Date: 20250115
  Serious: Yes (Other)
  Sender: SANDOZ
  Company Number: US-SANDOZ-SDZ2024US103341

PATIENT
  Sex: Female

DRUGS (9)
  1. AZITHROMYCIN [Suspect]
     Active Substance: AZITHROMYCIN
     Indication: Spinal cord infection
     Dosage: 250 MG, QD
     Route: 065
     Dates: start: 20220416
  2. AZITHROMYCIN [Suspect]
     Active Substance: AZITHROMYCIN
     Indication: Abscess
     Dosage: 500 MG, QD
     Route: 065
     Dates: start: 20220412
  3. AZITHROMYCIN [Suspect]
     Active Substance: AZITHROMYCIN
     Indication: Osteomyelitis
     Dosage: 500 MG, QD
     Route: 065
     Dates: start: 20220521
  4. ETHAMBUTOL HYDROCHLORIDE [Suspect]
     Active Substance: ETHAMBUTOL HYDROCHLORIDE
     Indication: Abscess
     Dosage: UNK
     Route: 065
     Dates: start: 20220319
  5. ETHAMBUTOL HYDROCHLORIDE [Suspect]
     Active Substance: ETHAMBUTOL HYDROCHLORIDE
     Indication: Osteomyelitis
  6. ETHAMBUTOL HYDROCHLORIDE [Suspect]
     Active Substance: ETHAMBUTOL HYDROCHLORIDE
     Indication: Spinal cord infection
  7. RIFAMPIN [Suspect]
     Active Substance: RIFAMPIN
     Indication: Abscess
     Dosage: UNK
     Route: 065
     Dates: start: 20220319
  8. RIFAMPIN [Suspect]
     Active Substance: RIFAMPIN
     Indication: Osteomyelitis
  9. RIFAMPIN [Suspect]
     Active Substance: RIFAMPIN
     Indication: Spinal cord infection

REACTIONS (3)
  - Chronic lymphocytic leukaemia [Unknown]
  - Drug interaction [Unknown]
  - Adverse event [Unknown]
